FAERS Safety Report 18485251 (Version 1)
Quarter: 2020Q4

REPORT INFORMATION
  Report Type: Spontaneous
  Country: BR (occurrence: BR)
  Receive Date: 20201110
  Receipt Date: 20201110
  Transmission Date: 20210114
  Serious: Yes (Hospitalization, Other)
  Sender: FDA-Public Use
  Company Number: BR-MYLANLABS-2020M1093418

PATIENT
  Age: 38 Year
  Sex: Female

DRUGS (1)
  1. FONDAPARINUX [Suspect]
     Active Substance: FONDAPARINUX
     Indication: THROMBOSIS
     Dosage: 2.5 MILLIGRAM, QD
     Route: 065

REACTIONS (4)
  - Off label use [Unknown]
  - Post procedural haemorrhage [Unknown]
  - Drug effective for unapproved indication [Unknown]
  - Haemothorax [Unknown]
